FAERS Safety Report 17764843 (Version 3)
Quarter: 2020Q3

REPORT INFORMATION
  Report Type: Spontaneous
  Country: US (occurrence: US)
  Receive Date: 20200511
  Receipt Date: 20200703
  Transmission Date: 20201102
  Serious: Yes (Hospitalization)
  Sender: FDA-Public Use
  Company Number: US-KARYOPHARM-2020KPT000500

PATIENT

DRUGS (1)
  1. XPOVIO [Suspect]
     Active Substance: SELINEXOR
     Indication: PLASMA CELL MYELOMA
     Dosage: 100 MG, WEEKLY
     Route: 048
     Dates: start: 20200414, end: 202006

REACTIONS (5)
  - Fluid overload [Unknown]
  - Tremor [Unknown]
  - Anaemia [Unknown]
  - Gait disturbance [Unknown]
  - Pneumonia [Unknown]

NARRATIVE: CASE EVENT DATE: 202004
